FAERS Safety Report 13250071 (Version 1)
Quarter: 2017Q1

REPORT INFORMATION
  Report Type: Spontaneous
  Country: US (occurrence: US)
  Receive Date: 20170218
  Receipt Date: 20170218
  Transmission Date: 20170428
  Serious: No
  Sender: FDA-Public Use
  Company Number: US-ALLERGAN-1666754US

PATIENT
  Sex: Female

DRUGS (4)
  1. BUPROPION. [Concomitant]
     Active Substance: BUPROPION
     Indication: ABDOMINAL PAIN UPPER
     Dosage: UNK
     Route: 048
  2. RESTASIS [Suspect]
     Active Substance: CYCLOSPORINE
     Indication: DRY EYE
     Dosage: UNK, BID
     Route: 047
     Dates: start: 20160529, end: 201608
  3. TYLENOL [Concomitant]
     Active Substance: ACETAMINOPHEN
     Indication: PRODUCT USED FOR UNKNOWN INDICATION
     Dosage: UNK
  4. LEVOTHYROXINE. [Concomitant]
     Active Substance: LEVOTHYROXINE
     Indication: HYPOTHYROIDISM
     Route: 048

REACTIONS (7)
  - Drug ineffective [Unknown]
  - Eye pruritus [Not Recovered/Not Resolved]
  - Eye disorder [Not Recovered/Not Resolved]
  - Adverse event [Not Recovered/Not Resolved]
  - Drug dose omission [Unknown]
  - Malaise [Unknown]
  - Eyelid oedema [Recovered/Resolved]
